FAERS Safety Report 7929598-3 (Version None)
Quarter: 2011Q4

REPORT INFORMATION
  Report Type: 
  Country: None (occurrence: None)
  Receive Date: 20111121
  Receipt Date: 20111110
  Transmission Date: 20120403
  Serious: Yes (Other)
  Sender: FDA-Public Use
  Company Number: US-US-EMD SERONO, INC.-7089008

PATIENT
  Sex: Female
  Weight: 61 kg

DRUGS (1)
  1. REBIF [Suspect]
     Indication: PRODUCT USED FOR UNKNOWN INDICATION
     Route: 058
     Dates: start: 20101104, end: 20111001

REACTIONS (6)
  - DYSGEUSIA [None]
  - INFLUENZA LIKE ILLNESS [None]
  - VOMITING [None]
  - LUNG INFECTION [None]
  - NAUSEA [None]
  - DYSPEPSIA [None]
